FAERS Safety Report 9496235 (Version 3)
Quarter: 2014Q2

REPORT INFORMATION
  Report Type: Spontaneous
  Country: JP (occurrence: None)
  Receive Date: 20130829
  Receipt Date: 20140501
  Transmission Date: 20141212
  Serious: Yes (Hospitalization, Other)
  Sender: FDA-Public Use
  Company Number: 2008JP005028

PATIENT
  Age: 36 Year
  Sex: Female
  Weight: 44 kg

DRUGS (31)
  1. PROGRAF [Suspect]
     Indication: LUPUS NEPHRITIS
     Route: 048
     Dates: start: 20071023, end: 20071105
  2. PREDNISOLONE (PREDNISOLONE) [Concomitant]
  3. VASOLAN (VERAPAMIL HYDROCHLORIDE) [Concomitant]
  4. FERROMIA (FERROUS SODIUM CITRATE) [Concomitant]
  5. ALTAT (ROXATIDINE ACETATE HYDRCHLORIDE) [Concomitant]
  6. FOSAMAC (ALENDRONATE SODIUM) [Concomitant]
  7. LAC B (LACTOBACILLUS BIFIDUS, LYOPHILIZED) [Concomitant]
  8. MAGNESIUM OXIDE (MAGNESIUM OXIDE) [Concomitant]
  9. BREDININ (MIZORIBINE) [Concomitant]
  10. ALFAROL (ALFACALCIDOL) [Concomitant]
  11. CRAVIT (LEVOFLOXACIN) [Concomitant]
  12. ERISPAN [Concomitant]
  13. PL (NON-PYRINE COLD PREPARATION) GRANULES [Concomitant]
  14. TRANSAMIN (TRANEXAMIC ACID) [Concomitant]
  15. MEIACT (CEFDITOREN PIVOXIL) [Concomitant]
  16. ENTERONON-R (ANTIBIOTICS-RESISTANT LACTIC ACID BACTERIAE) [Concomitant]
  17. RIZE /00624801/ (CLOTIAZEPAM) [Concomitant]
  18. LENDORMIN (BROTIZOLAM) ORODISPERSIBLE CR TABLET [Concomitant]
  19. BAYASPIRIN (ACETYLSALICYLIC ACID) [Concomitant]
  20. BAKTAR (SULFAMETHOXAZOLE, TRIMETHOPRIM) [Concomitant]
  21. PARIET (RABEPRAZOLE SODIUM) [Concomitant]
  22. WYPAX (LORAZEPAM) [Concomitant]
  23. U PAN (LORAZEPAM) [Concomitant]
  24. MEROPEN  /01250502/ (MEROPENEM TRIHYDRATE) [Concomitant]
  25. CEFMETAZON (CEFMETAZOLE SODIUM) INJECTION [Concomitant]
  26. MAGNESIUM (MAGNESIUM OXIDE) [Concomitant]
  27. MAGNESIUM (MAGNESIUM OXIDE) [Concomitant]
  28. CRAVIT (LEVOFLOXACIN HYDRATE) [Concomitant]
  29. BRENDININ (MIZORIBINE) [Concomitant]
  30. BRENDININ (MIZORIBINE) [Concomitant]
  31. ALFAROL (ALFACACIDOL) [Concomitant]

REACTIONS (19)
  - Histiocytosis haematophagic [None]
  - Pyelonephritis [None]
  - Pharyngitis [None]
  - Upper respiratory tract inflammation [None]
  - Cystitis [None]
  - Urethritis [None]
  - Urinary tract infection [None]
  - Dysthymic disorder [None]
  - Constipation [None]
  - Systemic lupus erythematosus [None]
  - Dialysis [None]
  - Pyelonephritis acute [None]
  - Metabolic acidosis [None]
  - Renal failure acute [None]
  - Pyrexia [None]
  - Malaise [None]
  - Gait disturbance [None]
  - Gastrointestinal disorder [None]
  - Serum ferritin increased [None]
